FAERS Safety Report 5219804-0 (Version None)
Quarter: 2007Q1

REPORT INFORMATION
  Report Type: 
  Country: None (occurrence: None)
  Receive Date: 20070125
  Receipt Date: 20070119
  Transmission Date: 20070707
  Serious: Yes (Hospitalization)
  Sender: FDA-Public Use
  Company Number: JP-BOEHRINGER INGELHEIM PHARMACEUTICALS, INC.-2004-BP-05261YA

PATIENT
  Sex: Male
  Weight: 57 kg

DRUGS (10)
  1. TAMSULOSIN HCL [Suspect]
     Indication: DYSURIA
     Route: 048
     Dates: start: 20040626, end: 20040629
  2. GASTER [Concomitant]
     Route: 048
     Dates: end: 20040629
  3. SM POWDER (TAKA-DIASTASE/NATURAL AGENTS) [Concomitant]
     Route: 048
  4. BUFFERIN [Concomitant]
     Route: 048
     Dates: end: 20040629
  5. HERBESSER [Concomitant]
     Route: 048
  6. SIGMART [Concomitant]
     Route: 048
  7. PERSANTIN [Concomitant]
     Route: 048
     Dates: end: 20040629
  8. ALOSENN [Concomitant]
     Route: 048
  9. MAGNESIUM OXIDE [Concomitant]
     Route: 048
  10. FLIVAS [Concomitant]
     Route: 048
     Dates: end: 20040525

REACTIONS (1)
  - ATRIAL FIBRILLATION [None]
